FAERS Safety Report 12466997 (Version 1)
Quarter: 2016Q2

REPORT INFORMATION
  Report Type: Spontaneous
  Country: US (occurrence: None)
  Receive Date: 20160614
  Receipt Date: 20160614
  Transmission Date: 20160815
  Serious: Yes (Other)
  Sender: FDA-Public Use
  Company Number: None

PATIENT
  Age: 73 Year
  Sex: Female
  Weight: 68.04 kg

DRUGS (35)
  1. DICLOFENAC [Concomitant]
     Active Substance: DICLOFENAC
  2. FAMCICLOVIR. [Concomitant]
     Active Substance: FAMCICLOVIR
  3. CALCIUM [Concomitant]
     Active Substance: CALCIUM
  4. LYSINE [Concomitant]
     Active Substance: LYSINE
  5. VITAMIN C [Concomitant]
     Active Substance: ASCORBIC ACID
  6. TACROLIMUS OINTMENT 0.1%, 0.1% E FOUGERA + CO. [Suspect]
     Active Substance: TACROLIMUS
     Indication: PSORIASIS
     Dosage: 1 TUBE TWICE A DAY APPLIED TO A SURFACE, USUALLY THE SKIN
     Dates: start: 20160601, end: 20160603
  7. SPIRONOLACTONE. [Concomitant]
     Active Substance: SPIRONOLACTONE
  8. ZALEPLON. [Concomitant]
     Active Substance: ZALEPLON
  9. PROAIR HFA [Concomitant]
     Active Substance: ALBUTEROL SULFATE
  10. PROBIOTICS [Concomitant]
     Active Substance: PROBIOTICS NOS
  11. ARMOUR THYROID [Concomitant]
     Active Substance: THYROID, PORCINE
  12. ESTRADIOL. [Concomitant]
     Active Substance: ESTRADIOL
  13. ALLEGRA-D [Concomitant]
     Active Substance: FEXOFENADINE\PSEUDOEPHEDRINE
  14. FOSINOPRIL SODIUM. [Concomitant]
     Active Substance: FOSINOPRIL SODIUM
  15. MAGNESIUM [Concomitant]
     Active Substance: MAGNESIUM
  16. VITAMIN D3 [Concomitant]
     Active Substance: CHOLECALCIFEROL
  17. DULERA [Concomitant]
     Active Substance: FORMOTEROL FUMARATE DIHYDRATE\MOMETASONE FUROATE
  18. KLOR-CON [Concomitant]
     Active Substance: POTASSIUM CHLORIDE
  19. MECLIZINE [Concomitant]
     Active Substance: MECLIZINE HYDROCHLORIDE
  20. PROBANTHANE [Concomitant]
  21. VITAMIN B [Concomitant]
     Active Substance: VITAMIN B
  22. OMEGA 3 FISH OIL [Concomitant]
     Active Substance: FISH OIL\OMEGA-3 FATTY ACIDS
  23. UBIQUINOL [Concomitant]
     Active Substance: UBIQUINOL
  24. AZELASTINE [Concomitant]
     Active Substance: AZELASTINE
  25. METHOTREXATE [Concomitant]
     Active Substance: METHOTREXATE
  26. ZETIA [Concomitant]
     Active Substance: EZETIMIBE
  27. HYDROCORTISONE. [Concomitant]
     Active Substance: HYDROCORTISONE
  28. FLAXSEED [Concomitant]
     Active Substance: FLAX SEED
  29. ACIPHEX [Concomitant]
     Active Substance: RABEPRAZOLE SODIUM
  30. DYAZIDE [Concomitant]
     Active Substance: HYDROCHLOROTHIAZIDE\TRIAMTERENE
  31. FOLIC ACID. [Concomitant]
     Active Substance: FOLIC ACID
  32. RANITIDINE. [Concomitant]
     Active Substance: RANITIDINE
  33. CENTRUM SILVER [Concomitant]
     Active Substance: MINERALS\VITAMINS
  34. LETHICIN [Concomitant]
  35. LUTEIN [Concomitant]
     Active Substance: LUTEIN

REACTIONS (7)
  - Application site pain [None]
  - Abdominal discomfort [None]
  - Fatigue [None]
  - Nausea [None]
  - Immune system disorder [None]
  - Herpes simplex [None]
  - Sinusitis [None]

NARRATIVE: CASE EVENT DATE: 20160604
